FAERS Safety Report 17119843 (Version 1)
Quarter: 2019Q4

REPORT INFORMATION
  Report Type: Spontaneous
  Country: PL (occurrence: PL)
  Receive Date: 20191206
  Receipt Date: 20191206
  Transmission Date: 20200122
  Serious: Yes (Other)
  Sender: FDA-Public Use
  Company Number: PL-IPCA LABORATORIES LIMITED-IPC-2019-PL-002103

PATIENT

DRUGS (3)
  1. PAROXETINE. [Interacting]
     Active Substance: PAROXETINE
     Indication: ANTIDEPRESSANT THERAPY
     Dosage: UNK
     Route: 065
  2. PROPRANOLOL [Suspect]
     Active Substance: PROPRANOLOL HYDROCHLORIDE
     Indication: CARDIOVASCULAR DISORDER
     Dosage: UNK
     Route: 065
  3. THIAMAZOLE [Concomitant]
     Active Substance: METHIMAZOLE
     Indication: PRODUCT USED FOR UNKNOWN INDICATION
     Dosage: UNK
     Route: 065

REACTIONS (2)
  - Bradycardia [Unknown]
  - Drug interaction [Unknown]
